FAERS Safety Report 19646380 (Version 8)
Quarter: 2022Q1

REPORT INFORMATION
  Report Type: Report from Study
  Country: US (occurrence: US)
  Receive Date: 20210802
  Receipt Date: 20220329
  Transmission Date: 20220423
  Serious: Yes (Hospitalization)
  Sender: FDA-Public Use
  Company Number: NVSC2021US169454

PATIENT
  Age: 64 Year
  Sex: Female
  Weight: 101.6 kg

DRUGS (20)
  1. KISQALI [Suspect]
     Active Substance: RIBOCICLIB
     Indication: HER2 negative breast cancer
     Dosage: 400 MG, QD
     Route: 048
     Dates: start: 20200114, end: 20210330
  2. FEMARA [Suspect]
     Active Substance: LETROZOLE
     Indication: HER2 negative breast cancer
     Dosage: 2.5 MG, QD
     Route: 048
     Dates: start: 20200114, end: 20210405
  3. ALBUTEROL [Concomitant]
     Active Substance: ALBUTEROL
     Indication: Product used for unknown indication
     Dosage: UNK
     Route: 065
     Dates: start: 20100910
  4. XARELTO [Concomitant]
     Active Substance: RIVAROXABAN
     Indication: Anticoagulant therapy
     Dosage: 20 MG, QD
     Route: 048
     Dates: start: 20210428, end: 20220220
  5. BUPROPION [Concomitant]
     Active Substance: BUPROPION
     Indication: Product used for unknown indication
     Dosage: UNK
     Route: 065
     Dates: start: 20130302
  6. FLUOROMETHOLONE [Concomitant]
     Active Substance: FLUOROMETHOLONE
     Indication: Product used for unknown indication
     Dosage: UNK
     Route: 065
     Dates: start: 20190707
  7. FLUTICASONE [Concomitant]
     Active Substance: FLUTICASONE
     Indication: Product used for unknown indication
     Dosage: UNK
     Route: 065
     Dates: start: 20070307
  8. LORAZEPAM [Concomitant]
     Active Substance: LORAZEPAM
     Indication: Product used for unknown indication
     Dosage: UNK
     Route: 065
     Dates: start: 20190515
  9. GABAPENTIN [Concomitant]
     Active Substance: GABAPENTIN
     Indication: Product used for unknown indication
     Dosage: UNK
     Route: 065
     Dates: start: 20190907
  10. ACETAMINOPHEN [Concomitant]
     Active Substance: ACETAMINOPHEN
     Indication: Product used for unknown indication
     Dosage: UNK
     Route: 065
     Dates: start: 20191213
  11. VITAMINS [Concomitant]
     Active Substance: VITAMINS
     Indication: Product used for unknown indication
     Dosage: UNK
     Route: 065
     Dates: start: 20100603
  12. OLOPATADINE [Concomitant]
     Active Substance: OLOPATADINE
     Indication: Product used for unknown indication
     Dosage: UNK
     Route: 065
     Dates: start: 20190707
  13. COMPAZINE [Concomitant]
     Active Substance: PROCHLORPERAZINE MALEATE
     Indication: Product used for unknown indication
     Dosage: UNK
     Route: 065
     Dates: start: 20190515
  14. TRAZODONE [Concomitant]
     Active Substance: TRAZODONE HYDROCHLORIDE
     Indication: Product used for unknown indication
     Dosage: UNK
     Route: 065
     Dates: start: 19970611
  15. VENLAFAXINE [Concomitant]
     Active Substance: VENLAFAXINE HYDROCHLORIDE
     Indication: Product used for unknown indication
     Dosage: UNK
     Route: 065
     Dates: start: 20190226
  16. KLOR-CON [Concomitant]
     Active Substance: POTASSIUM CHLORIDE
     Indication: Hypokalaemia
     Dosage: UNK
     Route: 065
     Dates: start: 20200923
  17. RIVAROXABAN [Concomitant]
     Active Substance: RIVAROXABAN
     Indication: Product used for unknown indication
     Dosage: UNK
     Route: 065
     Dates: start: 20210428
  18. FENTANYL [Concomitant]
     Active Substance: FENTANYL
     Indication: Product used for unknown indication
     Dosage: UNK
     Route: 065
     Dates: start: 20210408, end: 20210408
  19. VERSED [Concomitant]
     Active Substance: MIDAZOLAM HYDROCHLORIDE
     Indication: Product used for unknown indication
     Dosage: UNK
     Route: 065
     Dates: start: 20210408, end: 20210408
  20. ATORVASTATIN [Concomitant]
     Active Substance: ATORVASTATIN
     Indication: Hyperlipidaemia
     Dosage: 80 MG, EVERY MORNING
     Route: 048
     Dates: start: 20220217, end: 20220220

REACTIONS (3)
  - Pulmonary embolism [Recovered/Resolved]
  - Vena cava thrombosis [Recovered/Resolved]
  - Cerebrovascular accident [Recovered/Resolved]

NARRATIVE: CASE EVENT DATE: 20210405
